FAERS Safety Report 7209656-1 (Version None)
Quarter: 2011Q1

REPORT INFORMATION
  Report Type: 
  Country: None (occurrence: None)
  Receive Date: 20110103
  Receipt Date: 20110103
  Transmission Date: 20110831
  Serious: Yes (Life-Threatening, Hospitalization)
  Sender: FDA-Public Use
  Company Number: None

PATIENT
  Age: 57 Year
  Sex: Female
  Weight: 81.1939 kg

DRUGS (1)
  1. FLUOROURACIL [Suspect]
     Indication: SMEAR CERVIX ABNORMAL
     Dosage: 4MG EVERY MONDAY X 10 OTHER
     Route: 050
     Dates: start: 20100426, end: 20100426

REACTIONS (7)
  - NEURALGIA [None]
  - TOXICITY TO VARIOUS AGENTS [None]
  - INCORRECT DOSE ADMINISTERED [None]
  - IMPAIRED DRIVING ABILITY [None]
  - RENAL IMPAIRMENT [None]
  - ARTHROPATHY [None]
  - SLEEP DISORDER [None]
